FAERS Safety Report 4641450-8 (Version None)
Quarter: 2005Q2

REPORT INFORMATION
  Report Type: 
  Country: None (occurrence: None)
  Receive Date: 20050420
  Receipt Date: 20050420
  Transmission Date: 20051028
  Serious: Yes (Hospitalization)
  Sender: FDA-Public Use
  Company Number: None

PATIENT
  Age: 61 Year
  Sex: Male
  Weight: 85 kg

DRUGS (1)
  1. PROPRANOLOL [Suspect]
     Indication: ANGINA PECTORIS
     Dosage: 80MG  BID ORAL
     Route: 048
     Dates: start: 20050201, end: 20050216

REACTIONS (1)
  - CHEST PAIN [None]
